FAERS Safety Report 8432339 (Version 2)
Quarter: 2013Q2

REPORT INFORMATION
  Report Type: Spontaneous
  Country: DE (occurrence: None)
  Receive Date: 20120216
  Receipt Date: 20130610
  Transmission Date: 20140414
  Serious: Yes (Other)
  Sender: FDA-Public Use
  Company Number: HRA-CDB20120023

PATIENT
  Age: 33 Year
  Sex: Female

DRUGS (1)
  1. ELLAONE 30 MG TABLETTE (ELLAONE) (ULIPRISTAL ACETATE) [Suspect]
     Indication: CONTRACEPTION
     Dates: start: 20111128, end: 20111128

REACTIONS (3)
  - Unintended pregnancy [None]
  - Maternal exposure during pregnancy [None]
  - Abortion induced [None]
